FAERS Safety Report 8534476-5 (Version None)
Quarter: 2012Q3

REPORT INFORMATION
  Report Type: 
  Country: None (occurrence: None)
  Receive Date: 20120724
  Receipt Date: 20120712
  Transmission Date: 20120928
  Serious: Yes (Hospitalization, Other)
  Sender: FDA-Public Use
  Company Number: US-ROCHE-1088172

PATIENT
  Sex: Female
  Weight: 101.24 kg

DRUGS (2)
  1. RANIBIZUMAB [Suspect]
     Indication: DIABETES MELLITUS
  2. RANIBIZUMAB [Suspect]
     Indication: MACULAR OEDEMA

REACTIONS (1)
  - CEREBROVASCULAR ACCIDENT [None]
